FAERS Safety Report 6924395-X (Version None)
Quarter: 2010Q3

REPORT INFORMATION
  Report Type: 
  Country: None (occurrence: None)
  Receive Date: 20100804
  Receipt Date: 20100719
  Transmission Date: 20110219
  Serious: Yes (Death, Hospitalization)
  Sender: FDA-Public Use
  Company Number: 2010PROUSA00016

PATIENT
  Age: 76 Year
  Sex: Male

DRUGS (13)
  1. PROVENGE [Suspect]
     Indication: PROSTATE CANCER METASTATIC
     Dosage: 250 ML, SINGLE, INTRAVENOUS; 250 ML, SINGLE, INTRAVENOUS; 250ML, SINGLE, INTRAVENOUS
     Route: 042
     Dates: start: 20100618, end: 20100618
  2. PROVENGE [Suspect]
     Indication: PROSTATE CANCER METASTATIC
     Dosage: 250 ML, SINGLE, INTRAVENOUS; 250 ML, SINGLE, INTRAVENOUS; 250ML, SINGLE, INTRAVENOUS
     Route: 042
     Dates: start: 20100702, end: 20100702
  3. PROVENGE [Suspect]
     Indication: PROSTATE CANCER METASTATIC
     Dosage: 250 ML, SINGLE, INTRAVENOUS; 250 ML, SINGLE, INTRAVENOUS; 250ML, SINGLE, INTRAVENOUS
     Route: 042
     Dates: start: 20100716, end: 20100716
  4. PROVENGE [Suspect]
  5. PROVENGE [Suspect]
  6. METOPROLOL SUCCINATE [Concomitant]
  7. ASPIRIN [Concomitant]
  8. COMPAZINE /00013302/ (PROCHLORPERAZINE EDISYLATE) [Concomitant]
  9. LEXAPRO [Concomitant]
  10. LIPITOR [Concomitant]
  11. PREDNISONE [Concomitant]
  12. VICODIN [Concomitant]
  13. FISH OIL (FISH OIL) [Concomitant]

REACTIONS (10)
  - ARTERIOSCLEROSIS CORONARY ARTERY [None]
  - ASCITES [None]
  - ATRIAL FIBRILLATION [None]
  - DIARRHOEA [None]
  - MALIGNANT NEOPLASM PROGRESSION [None]
  - METASTASES TO BONE [None]
  - METASTASES TO LIVER [None]
  - PLEURAL EFFUSION [None]
  - PNEUMONIA [None]
  - PROSTATE CANCER METASTATIC [None]
